FAERS Safety Report 4306988-1 (Version None)
Quarter: 2004Q1

REPORT INFORMATION
  Report Type: 
  Country: None (occurrence: None)
  Receive Date: 20040227
  Receipt Date: 20040217
  Transmission Date: 20041129
  Serious: Yes (Other)
  Sender: FDA-Public Use
  Company Number: US-BRISTOL-MYERS SQUIBB COMPANY-12509717

PATIENT
  Age: 5 Month
  Sex: Male
  Weight: 7 kg

DRUGS (11)
  1. STAVUDINE [Suspect]
     Indication: HIV INFECTION
     Dosage: 2.5 ML VIA G TUBE, DATE OF MOST RECENT DOSE TAKEN PRIOR TO EVENT WAS 2/5/04.
     Route: 050
     Dates: start: 20031204
  2. LOPINAVIR + RITONAVIR [Suspect]
     Indication: HIV INFECTION
     Dosage: 80 MG/20 MG TWICE DAILY VIA G TUBE, DATE OF MOST RECENT DOSE TAKEN PRIOR TO EVENT WAS 2/5/04.
     Route: 050
     Dates: start: 20031204
  3. LAMIVUDINE [Suspect]
     Indication: HIV INFECTION
     Dosage: 6 ML VIA G TUBE, DATE OF MOST RECENT DOSE TAKEN PRIOR TO EVENT WAS 2/5/04.
     Route: 050
     Dates: start: 20031204
  4. PROPULSID [Concomitant]
  5. ATOVAQUONE [Concomitant]
  6. EPOGEN [Concomitant]
  7. FERROUS SULFATE TAB [Concomitant]
  8. BICITRA [Concomitant]
  9. NYSTATIN [Concomitant]
  10. FLORINEF [Concomitant]
  11. POLYSPORIN [Concomitant]
     Dosage: OINTMENT
     Route: 061

REACTIONS (1)
  - HYPERKALAEMIA [None]
